FAERS Safety Report 7930083 (Version 3)
Quarter: 2012Q4

REPORT INFORMATION
  Report Type: 
  Country: CN (occurrence: CN)
  Receive Date: 20110504
  Receipt Date: 20120905
  Transmission Date: 20130627
  Serious: Yes (Other)
  Sender: FDA-Public Use
  Company Number: CN-ASTRAZENECA-2011SE23348

PATIENT
  Age: 50 Year
  Sex: Male
  Weight: 45 kg

DRUGS (4)
  1. NEXIUM [Suspect]
     Indication: GASTRIC ULCER
     Route: 048
     Dates: start: 201011
  2. NEXIUM [Suspect]
     Indication: GASTRIC ULCER
     Route: 048
     Dates: end: 20110509
  3. LOSEC [Suspect]
     Route: 048
     Dates: start: 20100809, end: 201010
  4. AMOXICILLIN [Concomitant]
     Indication: GASTRIC ULCER
     Route: 048
     Dates: start: 201006

REACTIONS (1)
  - Gastric polyps [Unknown]
